FAERS Safety Report 5719170-8 (Version None)
Quarter: 2008Q2

REPORT INFORMATION
  Report Type: 
  Country: None (occurrence: None)
  Receive Date: 20080428
  Receipt Date: 20080211
  Transmission Date: 20081010
  Serious: Yes (Other)
  Sender: FDA-Public Use
  Company Number: US-BAYER-200813903NA

PATIENT
  Age: 27 Year
  Sex: Female

DRUGS (3)
  1. MIRENA [Suspect]
     Indication: CONTRACEPTION
     Route: 015
     Dates: start: 20080207
  2. PRE-NATAL VITAMINS (NOS) [Concomitant]
  3. TYLENOL [Concomitant]

REACTIONS (1)
  - VAGINAL SWELLING [None]
